FAERS Safety Report 25230921 (Version 1)
Quarter: 2025Q2

REPORT INFORMATION
  Report Type: Spontaneous
  Country: SE (occurrence: SE)
  Receive Date: 20250423
  Receipt Date: 20250423
  Transmission Date: 20250717
  Serious: Yes (Other)
  Sender: B BRAUN
  Company Number: SE-B.Braun Medical Inc.-2175468

PATIENT
  Age: 2 Month
  Sex: Female

DRUGS (13)
  1. SODIUM CHLORIDE [Suspect]
     Active Substance: SODIUM CHLORIDE
  2. MELATONIN [Concomitant]
     Active Substance: MELATONIN
  3. PROMETHAZINE HYDROCHLORIDE\THIOUREA [Concomitant]
     Active Substance: PROMETHAZINE HYDROCHLORIDE\THIOUREA
  4. Natriumklorid Abboxia [Concomitant]
  5. ERGOCALCIFEROL\PHYTONADIONE\RETINOL\TOCOPHEROL [Concomitant]
     Active Substance: ERGOCALCIFEROL\PHYTONADIONE\RETINOL\TOCOPHEROL
  6. ELECTROLYTES NOS\MINERALS [Concomitant]
     Active Substance: ELECTROLYTES NOS\MINERALS
  7. Omeprazol Apofri [Concomitant]
  8. Natriumklorid Baxter Viaflo [Concomitant]
  9. VITAMINS [Concomitant]
     Active Substance: VITAMINS
  10. AMINO ACIDS\DEXTROSE\ELECTROLYTES NOS\SOYBEAN OIL [Concomitant]
     Active Substance: AMINO ACIDS\DEXTROSE\ELECTROLYTES NOS\SOYBEAN OIL
  11. CAFFEINE\EPHEDRINE\PROMETHAZINE [Concomitant]
     Active Substance: CAFFEINE\EPHEDRINE\PROMETHAZINE
  12. Kaliumklorid Orifarm [Concomitant]
  13. Beviplex forte [Concomitant]

REACTIONS (2)
  - Laryngomalacia [Unknown]
  - Cardiac murmur [Unknown]
